FAERS Safety Report 8920057 (Version 1)
Quarter: 2012Q4

REPORT INFORMATION
  Report Type: 
  Country: US (occurrence: US)
  Receive Date: 20121121
  Receipt Date: 20121121
  Transmission Date: 20130627
  Serious: No
  Sender: FDA-Public Use
  Company Number: US-BRISTOL-MYERS SQUIBB COMPANY-16875171

PATIENT
  Age: 80 Year
  Sex: Female

DRUGS (1)
  1. AVALIDE [Suspect]
     Indication: BLOOD PRESSURE

REACTIONS (2)
  - Diarrhoea [Unknown]
  - Flatulence [Unknown]
